FAERS Safety Report 22295299 (Version 2)
Quarter: 2023Q2

REPORT INFORMATION
  Report Type: Spontaneous
  Country: US (occurrence: US)
  Receive Date: 20230508
  Receipt Date: 20230525
  Transmission Date: 20230722
  Serious: Yes (Other)
  Sender: FDA-Public Use
  Company Number: US-UPSHER-SMITH LABORATORIES, LLC-2023USL00442

PATIENT
  Sex: Female
  Weight: 74.83 kg

DRUGS (2)
  1. MYORISAN [Suspect]
     Active Substance: ISOTRETINOIN
     Indication: Acne cystic
     Dosage: 10 MG, 2X/DAY
     Route: 048
     Dates: start: 20230117, end: 20230222
  2. MYORISAN [Suspect]
     Active Substance: ISOTRETINOIN
     Indication: Acne

REACTIONS (3)
  - Anxiety [Unknown]
  - Depression [Unknown]
  - Suicidal ideation [Unknown]

NARRATIVE: CASE EVENT DATE: 20230101
